FAERS Safety Report 7509803-8 (Version None)
Quarter: 2011Q2

REPORT INFORMATION
  Report Type: 
  Country: None (occurrence: None)
  Receive Date: 20110527
  Receipt Date: 20110523
  Transmission Date: 20111010
  Serious: Yes (Death)
  Sender: FDA-Public Use
  Company Number: A0836238C

PATIENT
  Sex: Female
  Weight: 64 kg

DRUGS (3)
  1. LAPATINIB [Suspect]
     Dosage: 1500MG PER DAY
     Route: 048
     Dates: start: 20090619
  2. RADIOTHERAPY [Concomitant]
     Dosage: 2GY VARIABLE DOSE
     Route: 061
     Dates: start: 20090622
  3. CISPLATIN [Suspect]
     Dosage: 100MGM2 CYCLIC
     Route: 042
     Dates: start: 20090622

REACTIONS (1)
  - COMPLETED SUICIDE [None]
